FAERS Safety Report 8581019-6 (Version None)
Quarter: 2012Q3

REPORT INFORMATION
  Report Type: 
  Country: None (occurrence: None)
  Receive Date: 20120809
  Receipt Date: 20120807
  Transmission Date: 20120928
  Serious: No
  Sender: FDA-Public Use
  Company Number: US-PFIZER INC-2012193118

PATIENT
  Age: 41 Year
  Sex: Female
  Weight: 83.9 kg

DRUGS (10)
  1. MORPHINE SULFATE [Concomitant]
     Indication: PAIN
     Dosage: UNK
  2. VICODIN [Concomitant]
     Indication: PAIN
     Dosage: UNK
     Route: 048
  3. VYTORIN [Concomitant]
     Dosage: UNK
  4. CHANTIX [Suspect]
     Indication: SMOKING CESSATION THERAPY
     Route: 048
  5. KLOR-CON [Concomitant]
     Dosage: UNK
  6. CITALOPRAM [Concomitant]
     Indication: DEPRESSION
     Dosage: UNK
  7. BACLOFEN [Concomitant]
     Indication: MYALGIA
     Dosage: UNK
  8. NEURONTIN [Concomitant]
     Indication: NEURALGIA
     Dosage: UNK
  9. XANAX [Concomitant]
     Indication: ANXIETY
     Dosage: UNK
     Route: 048
  10. DOXEPIN [Concomitant]
     Indication: SLEEP DISORDER
     Dosage: UNK

REACTIONS (1)
  - HYPERTENSION [None]
